FAERS Safety Report 7563097-6 (Version None)
Quarter: 2011Q2

REPORT INFORMATION
  Report Type: 
  Country: None (occurrence: None)
  Receive Date: 20110615
  Receipt Date: 20110601
  Transmission Date: 20111010
  Serious: Yes (Hospitalization)
  Sender: FDA-Public Use
  Company Number: UTC-007571

PATIENT
  Age: 67 Year
  Sex: Female

DRUGS (2)
  1. TYVASO [Suspect]
     Indication: PULMONARY ARTERIAL HYPERTENSION
     Dosage: 18-54 MICROGRAMS (4 IN 1 D), INHALATION
     Route: 055
     Dates: start: 20091117
  2. DIURETICS (DIURETICS) [Concomitant]

REACTIONS (2)
  - FLUID RETENTION [None]
  - OXYGEN SATURATION DECREASED [None]
